FAERS Safety Report 26162879 (Version 1)
Quarter: 2025Q4

REPORT INFORMATION
  Report Type: Spontaneous
  Country: GB (occurrence: GB)
  Receive Date: 20251216
  Receipt Date: 20251216
  Transmission Date: 20260118
  Serious: Yes (Other)
  Sender: INSUD PHARMA
  Company Number: GB-UKI-GBR/2025/12/018467

PATIENT
  Age: 9 Year
  Sex: Female

DRUGS (1)
  1. OMEPRAZOLE [Suspect]
     Active Substance: OMEPRAZOLE
     Indication: Product used for unknown indication
     Dosage: UNK
     Route: 065

REACTIONS (6)
  - Hypothyroidism [Unknown]
  - Hereditary alpha tryptasaemia [Unknown]
  - Urticaria chronic [Unknown]
  - Migraine [Unknown]
  - Rhinitis allergic [Unknown]
  - Allergic reaction to excipient [Unknown]
